FAERS Safety Report 5717890-2 (Version None)
Quarter: 2008Q2

REPORT INFORMATION
  Report Type: 
  Country: None (occurrence: None)
  Receive Date: 20080425
  Receipt Date: 20080227
  Transmission Date: 20081010
  Serious: No
  Sender: FDA-Public Use
  Company Number: US-ABBOTT-08P-163-0440026-00

PATIENT
  Sex: Female
  Weight: 56.296 kg

DRUGS (1)
  1. ERYTHROMYCIN BASE [Suspect]
     Indication: EAR INFECTION
     Route: 048

REACTIONS (5)
  - DRUG HYPERSENSITIVITY [None]
  - ERYTHEMA [None]
  - EYE SWELLING [None]
  - SWELLING FACE [None]
  - URTICARIA [None]
